FAERS Safety Report 9969381 (Version 11)
Quarter: 2016Q1

REPORT INFORMATION
  Report Type: Report from Study
  Country: MY (occurrence: MY)
  Receive Date: 20140306
  Receipt Date: 20160329
  Transmission Date: 20160526
  Serious: Yes (Hospitalization)
  Sender: FDA-Public Use
  Company Number: MY-ROCHE-1282313

PATIENT
  Age: 59 Year
  Sex: Male
  Weight: 50 kg

DRUGS (29)
  1. TRASTUZUMAB [Suspect]
     Active Substance: TRASTUZUMAB
     Indication: HER-2 POSITIVE GASTRIC CANCER
     Dosage: INITIAL DOSE OF 8 MG/KG IV FOLLOWED BY 6 MG/KG IV EVERY 3 WEEKS
     Route: 042
     Dates: start: 20130902, end: 20130902
  2. EMEND [Concomitant]
     Active Substance: APREPITANT
     Route: 048
     Dates: start: 20130903, end: 20130904
  3. CISPLATIN. [Suspect]
     Active Substance: CISPLATIN
     Indication: HER-2 POSITIVE GASTRIC CANCER
     Route: 042
     Dates: start: 20130902, end: 20130902
  4. CEFUROXIME. [Concomitant]
     Active Substance: CEFUROXIME
     Indication: IMPETIGO
  5. GLICLAZIDE [Concomitant]
     Active Substance: GLICLAZIDE
     Indication: DIABETES MELLITUS
     Route: 048
     Dates: start: 1998
  6. MAXOLON [Concomitant]
     Active Substance: METOCLOPRAMIDE HYDROCHLORIDE
     Indication: FLATULENCE
     Route: 042
     Dates: start: 20140228, end: 20140302
  7. LORATADINE. [Concomitant]
     Active Substance: LORATADINE
     Dosage: INDICATION: RELIEF OF SYMPTOMS ASSOCIATED W/ ALLERGIC RHINITIS EG SNEEZING, NASAL DISCHARGE + ITCHIN
     Route: 048
     Dates: start: 20130927, end: 20131003
  8. EMEND [Concomitant]
     Active Substance: APREPITANT
     Indication: VOMITING
     Route: 048
     Dates: start: 20130902, end: 20130902
  9. CEFUROXIME. [Concomitant]
     Active Substance: CEFUROXIME
     Indication: PYODERMA
  10. PERTUZUMAB [Suspect]
     Active Substance: PERTUZUMAB
     Indication: HER-2 POSITIVE GASTRIC CANCER
     Route: 042
     Dates: start: 20130902, end: 20140211
  11. ISOPHANE INSULIN [Concomitant]
     Active Substance: INSULIN NOS
     Indication: DIABETES MELLITUS
     Dosage: DOSE UNIT=U
     Route: 058
     Dates: start: 2009
  12. LORATADINE. [Concomitant]
     Active Substance: LORATADINE
     Indication: NASAL PRURITUS
  13. GRISEOFULVIN. [Concomitant]
     Active Substance: GRISEOFULVIN
     Dosage: INDICATION: ANTIFUNGAL
     Route: 048
     Dates: start: 20130927
  14. ALPRAZOLAM. [Concomitant]
     Active Substance: ALPRAZOLAM
     Indication: INSOMNIA
     Route: 048
     Dates: start: 20140211, end: 20140221
  15. TRASTUZUMAB [Suspect]
     Active Substance: TRASTUZUMAB
     Dosage: LAST DOSE PRIOR TO SERIOUS ADVERSE EVENT: 11/FEB/2014
     Route: 042
  16. CAPECITABINE. [Suspect]
     Active Substance: CAPECITABINE
     Route: 048
     Dates: end: 20130916
  17. MAXOLON [Concomitant]
     Active Substance: METOCLOPRAMIDE HYDROCHLORIDE
     Indication: DYSPEPSIA
     Route: 048
     Dates: start: 20130903, end: 20130905
  18. LORATADINE. [Concomitant]
     Active Substance: LORATADINE
     Indication: RHINORRHOEA
     Dosage: FOR RELIEF OF SYMPTOMS ASSOCIATED WITH ALLERGIC RHINITIS EG SNEEZING
     Route: 048
     Dates: start: 20130927, end: 20131003
  19. METFORMIN [Concomitant]
     Active Substance: METFORMIN HYDROCHLORIDE
     Indication: DIABETES MELLITUS
     Route: 048
     Dates: start: 1993, end: 20140421
  20. DEXAMETHASONE. [Concomitant]
     Active Substance: DEXAMETHASONE
     Route: 048
     Dates: start: 20130903, end: 20130905
  21. CEFUROXIME. [Concomitant]
     Active Substance: CEFUROXIME
     Dosage: INDICATION: SKIN AND SOFT-TISSUE INFECTIONS EG, FURUNCULOSIS, PYODERMA AND IMPETIGO
     Route: 048
     Dates: start: 20130927, end: 20131003
  22. SIMVASTATIN. [Concomitant]
     Active Substance: SIMVASTATIN
     Indication: HYPERCHOLESTEROLAEMIA
     Route: 065
     Dates: start: 2009, end: 20140421
  23. PARACETAMOL [Concomitant]
     Active Substance: ACETAMINOPHEN
     Dosage: INDICATION PAIN CONTROLLER
     Route: 048
     Dates: start: 20140212, end: 20140221
  24. CAPECITABINE. [Suspect]
     Active Substance: CAPECITABINE
     Indication: HER-2 POSITIVE GASTRIC CANCER
     Route: 048
     Dates: start: 20130903, end: 20130907
  25. MAXOLON [Concomitant]
     Active Substance: METOCLOPRAMIDE HYDROCHLORIDE
     Indication: GASTROOESOPHAGEAL REFLUX DISEASE
     Route: 048
     Dates: start: 20140212, end: 20140221
  26. MAXOLON [Concomitant]
     Active Substance: METOCLOPRAMIDE HYDROCHLORIDE
     Indication: NAUSEA
  27. MAXOLON [Concomitant]
     Active Substance: METOCLOPRAMIDE HYDROCHLORIDE
     Indication: VOMITING
  28. LORAZEPAM. [Concomitant]
     Active Substance: LORAZEPAM
     Indication: INSOMNIA
     Dosage: SELECT IF ONGOING=NO DOSE UNIT=G
     Route: 048
     Dates: start: 20140223, end: 20140224
  29. CEFUROXIME. [Concomitant]
     Active Substance: CEFUROXIME
     Indication: FURUNCLE
     Dosage: FOR SKIN AND SOFT TISSUE INFECTION EG
     Route: 048
     Dates: start: 20130927, end: 20131003

REACTIONS (3)
  - Diarrhoea [Recovered/Resolved]
  - Dehydration [Not Recovered/Not Resolved]
  - Diarrhoea [Recovered/Resolved]

NARRATIVE: CASE EVENT DATE: 20130907
